FAERS Safety Report 4585366-4 (Version None)
Quarter: 2005Q1

REPORT INFORMATION
  Report Type: 
  Country: None (occurrence: None)
  Receive Date: 20050217
  Receipt Date: 20041109
  Transmission Date: 20050727
  Serious: Yes (Other)
  Sender: FDA-Public Use
  Company Number: 200413437JP

PATIENT
  Age: 77 Year
  Sex: Male
  Weight: 63 kg

DRUGS (10)
  1. KETEK [Suspect]
     Indication: BRONCHITIS
     Route: 048
     Dates: start: 20040904, end: 20040912
  2. ADALAT [Concomitant]
     Indication: HYPERTENSION
     Route: 048
  3. SERENAL [Concomitant]
     Dosage: DOSE: 2 TABLETS
     Route: 048
  4. INTEBAN [Concomitant]
     Indication: PAIN
     Dosage: DOSE: 2 TABLETS
     Route: 048
     Dates: start: 20040902, end: 20040912
  5. INTEBAN [Concomitant]
     Indication: PYREXIA
     Dosage: DOSE: 2 TABLETS
     Route: 048
     Dates: start: 20040902, end: 20040912
  6. CODEIN PHOSPHATE [Concomitant]
     Indication: COUGH
     Route: 048
     Dates: start: 20040904, end: 20040912
  7. DIGOSIN [Concomitant]
     Indication: CARDIAC FAILURE
     Route: 048
     Dates: start: 20040911, end: 20040913
  8. TIENAM [Concomitant]
     Indication: LIVER ABSCESS
     Route: 041
     Dates: start: 20040910, end: 20040922
  9. LASIX [Concomitant]
     Indication: CARDIAC FAILURE
     Route: 041
     Dates: start: 20040911, end: 20040914
  10. HEPARIN [Concomitant]
     Indication: CARDIAC FAILURE
     Dosage: FREQUENCY: CONTINUOUS
     Route: 041
     Dates: start: 20040910, end: 20041004

REACTIONS (4)
  - CARDIAC FAILURE [None]
  - HYPOKALAEMIA [None]
  - LOSS OF CONSCIOUSNESS [None]
  - TORSADE DE POINTES [None]
